FAERS Safety Report 10691079 (Version 3)
Quarter: 2015Q1

REPORT INFORMATION
  Report Type: Spontaneous
  Country: FR (occurrence: FR)
  Receive Date: 20150105
  Receipt Date: 20150109
  Transmission Date: 20150720
  Serious: Yes (Other)
  Sender: FDA-Public Use
  Company Number: FR-009507513-1412FRA011206

PATIENT
  Age: 52 Year
  Sex: Male
  Weight: 78 kg

DRUGS (5)
  1. VELMETIA [Suspect]
     Active Substance: METFORMIN\SITAGLIPTIN
     Dosage: 2 INTAKES DAILY
     Route: 065
     Dates: start: 201405, end: 201411
  2. METFORMIN [Concomitant]
     Active Substance: METFORMIN HYDROCHLORIDE
     Indication: PRODUCT USED FOR UNKNOWN INDICATION
     Dosage: 1 INTAKE DAILY AT MIDDAY, STRENGHT 1000, UNIT NOT PROVIDED
     Route: 065
     Dates: start: 2008, end: 2008
  3. VELMETIA [Suspect]
     Active Substance: METFORMIN\SITAGLIPTIN
     Indication: TYPE 2 DIABETES MELLITUS
     Dosage: UNK
     Route: 065
     Dates: start: 20140312, end: 201405
  4. VELMETIA [Suspect]
     Active Substance: METFORMIN\SITAGLIPTIN
     Dosage: 2 INTAKES DAILY
     Route: 065
     Dates: start: 201411, end: 20141201
  5. DOLIPRANE [Concomitant]
     Active Substance: ACETAMINOPHEN
     Indication: PAIN
     Dosage: 3 INTAKES DAILY

REACTIONS (1)
  - Pancreatitis [Recovered/Resolved]

NARRATIVE: CASE EVENT DATE: 201404
